FAERS Safety Report 16619984 (Version 2)
Quarter: 2019Q3

REPORT INFORMATION
  Report Type: Report from Study
  Country: MX (occurrence: MX)
  Receive Date: 20190723
  Receipt Date: 20190822
  Transmission Date: 20191004
  Serious: Yes (Other)
  Sender: FDA-Public Use
  Company Number: MX-UCBSA-2019030180

PATIENT
  Age: 83 Year
  Sex: Female
  Weight: 50 kg

DRUGS (13)
  1. ROTIGOTINE [Suspect]
     Active Substance: ROTIGOTINE
     Dosage: 8 MILLIGRAM, ONCE DAILY (QD)
     Route: 062
  2. DONEPEZIL. [Concomitant]
     Active Substance: DONEPEZIL
     Indication: MEMORY IMPAIRMENT
     Dosage: 10 MILLIGRAM
     Dates: start: 201803
  3. ROTIGOTINE [Suspect]
     Active Substance: ROTIGOTINE
     Dosage: 4 MILLIGRAM, ONCE DAILY (QD)
     Route: 062
  4. FERRANIN COMPLEX [Concomitant]
     Indication: ANAEMIA
     Dosage: UNK, ONCE DAILY (QD)
     Route: 048
     Dates: start: 20190608
  5. ASPIRIN PROTECT [Concomitant]
     Active Substance: ASPIRIN
     Indication: CARDIAC DISORDER
     Dosage: UNK
     Dates: start: 201803
  6. METOPROLOL. [Concomitant]
     Active Substance: METOPROLOL
     Indication: HYPERTENSION
  7. AKATINOL [Concomitant]
  8. PAROXETINE. [Concomitant]
     Active Substance: PAROXETINE
     Indication: PRODUCT USED FOR UNKNOWN INDICATION
     Dosage: 0.5 MILLIGRAM, ONCE DAILY (QD)
  9. EUTIROX [Concomitant]
     Active Substance: LEVOTHYROXINE SODIUM
     Indication: THYROID HORMONES DECREASED
     Dosage: STRENGTH:25 MICROGRAMS, 0.5 MICROGRAM, ONCE DAILY (QD)
     Route: 048
     Dates: start: 20190629
  10. CLOPIDOGREL [Concomitant]
     Active Substance: CLOPIDOGREL BISULFATE
     Indication: MEMORY IMPAIRMENT
  11. ROTIGOTINE [Suspect]
     Active Substance: ROTIGOTINE
     Dosage: 6 MILLIGRAM, ONCE DAILY (QD)
     Route: 062
  12. ATORVASTATIN [Concomitant]
     Active Substance: ATORVASTATIN
     Indication: PAROTID DUCT OBSTRUCTION
     Dosage: UNK
     Dates: start: 201803
  13. ROTIGOTINE [Suspect]
     Active Substance: ROTIGOTINE
     Indication: PARKINSON^S DISEASE
     Dosage: 2 MILLIGRAM, ONCE DAILY (QD)
     Route: 062
     Dates: start: 2018

REACTIONS (5)
  - Parotid duct obstruction [Unknown]
  - Thyroid hormones decreased [Unknown]
  - Tremor [Recovered/Resolved]
  - Anaemia [Unknown]
  - Restlessness [Unknown]

NARRATIVE: CASE EVENT DATE: 201803
